FAERS Safety Report 6035040-2 (Version None)
Quarter: 2009Q1

REPORT INFORMATION
  Report Type: 
  Country: None (occurrence: None)
  Receive Date: 20090112
  Receipt Date: 20080326
  Transmission Date: 20090719
  Serious: Yes (Hospitalization)
  Sender: FDA-Public Use
  Company Number: US-ABBOTT-08P-163-0444546-00

PATIENT
  Age: 4 Year
  Sex: Female
  Weight: 18 kg

DRUGS (4)
  1. NIMBEX [Suspect]
     Indication: MECHANICAL VENTILATION
     Route: 042
     Dates: start: 20080201, end: 20080201
  2. NIMBEX [Suspect]
     Route: 042
     Dates: start: 20080201, end: 20080201
  3. FLUCONAZOLE [Concomitant]
     Indication: PNEUMONIA
     Route: 042
     Dates: start: 20080201, end: 20080201
  4. FLUCONAZOLE [Concomitant]
     Indication: SEPSIS

REACTIONS (1)
  - DRUG INEFFECTIVE [None]
